FAERS Safety Report 7719392 (Version 2)
Quarter: 2014Q1

REPORT INFORMATION
  Report Type: Spontaneous
  Country: US (occurrence: US)
  Receive Date: 20101219
  Receipt Date: 20140228
  Transmission Date: 20141002
  Serious: No
  Sender: FDA-Public Use
  Company Number: US-AMGEN-KDL395771

PATIENT
  Age: 57 Year
  Sex: Male
  Weight: 117.9 kg

DRUGS (1)
  1. ENBREL [Suspect]
     Indication: PSORIASIS
     Dosage: 50 MG, QWK
     Route: 058
     Dates: start: 20091201

REACTIONS (2)
  - Constipation [Unknown]
  - Injection site reaction [Recovered/Resolved]
